FAERS Safety Report 17580770 (Version 1)
Quarter: 2020Q1

REPORT INFORMATION
  Report Type: Spontaneous
  Country: BR (occurrence: BR)
  Receive Date: 20200325
  Receipt Date: 20200325
  Transmission Date: 20200409
  Serious: Yes (Other)
  Sender: FDA-Public Use
  Company Number: BR-BIOGEN-2018BI00526285

PATIENT
  Age: 42 Year
  Sex: Male

DRUGS (4)
  1. AVONEX PEN [Suspect]
     Active Substance: INTERFERON BETA-1A
     Route: 050
     Dates: start: 201101
  2. AVONEX PEN [Suspect]
     Active Substance: INTERFERON BETA-1A
  3. AVONEX PEN [Suspect]
     Active Substance: INTERFERON BETA-1A
     Route: 050
     Dates: start: 201101
  4. AVONEX PEN [Suspect]
     Active Substance: INTERFERON BETA-1A
     Indication: MULTIPLE SCLEROSIS
     Route: 050
     Dates: start: 201101

REACTIONS (18)
  - Product preparation issue [Unknown]
  - Limb mass [Unknown]
  - Headache [Recovered/Resolved]
  - Injection site swelling [Not Recovered/Not Resolved]
  - Flushing [Unknown]
  - Injection site pain [Recovered/Resolved]
  - Hypersensitivity [Not Recovered/Not Resolved]
  - Lack of injection site rotation [Unknown]
  - Influenza [Recovered/Resolved]
  - Malaise [Recovered/Resolved]
  - Multiple sclerosis relapse [Not Recovered/Not Resolved]
  - Injection site rash [Not Recovered/Not Resolved]
  - Injury associated with device [Unknown]
  - Injection site pruritus [Not Recovered/Not Resolved]
  - Injection site haemorrhage [Unknown]
  - Facial paralysis [Recovered/Resolved with Sequelae]
  - Cold burn [Unknown]
  - Injection site injury [Recovered/Resolved]

NARRATIVE: CASE EVENT DATE: 20140502
